FAERS Safety Report 11184430 (Version 1)
Quarter: 2015Q2

REPORT INFORMATION
  Report Type: Spontaneous
  Country: KR (occurrence: KR)
  Receive Date: 20150612
  Receipt Date: 20150612
  Transmission Date: 20150821
  Serious: Yes (Death)
  Sender: FDA-Public Use
  Company Number: KR-BAYER-2015-326958

PATIENT
  Age: 56 Year
  Sex: Male
  Weight: 61.22 kg

DRUGS (3)
  1. HEPSERA [Concomitant]
     Active Substance: ADEFOVIR DIPIVOXIL
     Dosage: DAILY DOSE OF 10 MG
  2. ZEFFIX [Concomitant]
     Active Substance: LAMIVUDINE
     Dosage: DAILY DOSE OF 100 MG
  3. NEXAVAR [Suspect]
     Active Substance: SORAFENIB
     Indication: HEPATOCELLULAR CARCINOMA
     Dosage: DAILY DOSE 800 MG
     Route: 048
     Dates: start: 20140625, end: 20140710

REACTIONS (1)
  - Hepatic failure [Fatal]

NARRATIVE: CASE EVENT DATE: 20141217
